FAERS Safety Report 9476719 (Version 1)
Quarter: 2013Q3

REPORT INFORMATION
  Report Type: Spontaneous
  Country: US (occurrence: US)
  Receive Date: 20130826
  Receipt Date: 20130826
  Transmission Date: 20140515
  Serious: No
  Sender: FDA-Public Use
  Company Number: US-BRISTOL-MYERS SQUIBB COMPANY-17079351

PATIENT
  Age: 74 Year
  Sex: Female
  Weight: 72.56 kg

DRUGS (1)
  1. KENALOG-40 INJ [Suspect]
     Indication: INTERVERTEBRAL DISC DEGENERATION
     Route: 008
     Dates: start: 20121022

REACTIONS (3)
  - Drug administration error [Unknown]
  - Headache [Unknown]
  - Erythema [Unknown]
